FAERS Safety Report 7056512-8 (Version None)
Quarter: 2010Q4

REPORT INFORMATION
  Report Type: 
  Country: None (occurrence: None)
  Receive Date: 20101021
  Receipt Date: 20101012
  Transmission Date: 20110411
  Serious: Yes (Other)
  Sender: FDA-Public Use
  Company Number: HR-PFIZER INC-2010129272

PATIENT
  Sex: Female

DRUGS (5)
  1. SORTIS [Suspect]
     Dosage: 20 MG, UNK
     Route: 048
  2. CORDARONE [Suspect]
     Dosage: 200 MG, 3X/DAY
  3. CONCOR [Concomitant]
     Dosage: 2.5 MG, UNK
  4. LACIPIL [Concomitant]
     Dosage: 4 MG, UNK
  5. CLEXANE [Concomitant]
     Dosage: UNK

REACTIONS (2)
  - HEPATIC LESION [None]
  - TRANSAMINASES INCREASED [None]
